FAERS Safety Report 9195962 (Version 1)
Quarter: 2013Q1

REPORT INFORMATION
  Report Type: Spontaneous
  Country: CH (occurrence: CH)
  Receive Date: 20130328
  Receipt Date: 20130328
  Transmission Date: 20140127
  Serious: Yes (Disabling)
  Sender: FDA-Public Use
  Company Number: PHHY2013CH028960

PATIENT
  Age: 56 Year
  Sex: Male

DRUGS (2)
  1. ZOMETA [Suspect]
     Indication: BONE CANCER
     Dosage: 4 MG, EVERY 4 WEEKS
     Route: 042
     Dates: start: 201011
  2. ZOMETA [Suspect]
     Indication: MALIGNANT NEOPLASM OF AURICULAR CARTILAGE

REACTIONS (1)
  - Osteonecrosis of jaw [Unknown]
